FAERS Safety Report 10214905 (Version 1)
Quarter: 2014Q2

REPORT INFORMATION
  Report Type: Spontaneous
  Country: US (occurrence: US)
  Receive Date: 20140603
  Receipt Date: 20140603
  Transmission Date: 20141212
  Serious: Yes (Life-Threatening)
  Sender: FDA-Public Use
  Company Number: US-MYLANLABS-2014S1012911

PATIENT
  Age: 37 Year
  Sex: Female

DRUGS (7)
  1. PROTAMINE SULFATE [Suspect]
     Dosage: 200MG
     Route: 065
  2. EPINEPHRINE [Suspect]
     Indication: HYPOTENSION
     Dosage: 12.8 MG TOTAL
     Route: 042
  3. DIPHENHYDRAMINE [Concomitant]
     Indication: HYPOTENSION
     Dosage: 50MG
     Route: 065
  4. VASOPRESSIN [Concomitant]
     Indication: HYPOTENSION
     Dosage: 112 UNITS
     Route: 065
  5. DESMOPRESSIN [Concomitant]
     Indication: HYPOTENSION
     Dosage: 20 MICROG
     Route: 065
  6. LEVOTHYROXINE SODIUM [Concomitant]
     Indication: HYPOTENSION
     Dosage: 100 MICROG
     Route: 065
  7. HYDROCORTISONE [Concomitant]
     Indication: HYPOTENSION
     Dosage: 100 MG
     Route: 065

REACTIONS (2)
  - Kounis syndrome [Recovered/Resolved]
  - Stress cardiomyopathy [Recovered/Resolved]
